FAERS Safety Report 7794814-8 (Version None)
Quarter: 2011Q4

REPORT INFORMATION
  Report Type: 
  Country: None (occurrence: None)
  Receive Date: 20111004
  Receipt Date: 20110928
  Transmission Date: 20120403
  Serious: No
  Sender: FDA-Public Use
  Company Number: US-PFIZER INC-2011232201

PATIENT
  Sex: Female
  Weight: 77.098 kg

DRUGS (1)
  1. ADVIL PM [Suspect]
     Indication: INSOMNIA
     Dosage: 400 MG,DAILY
     Dates: start: 20110928

REACTIONS (3)
  - DIZZINESS [None]
  - GAIT DISTURBANCE [None]
  - FEELING DRUNK [None]
